FAERS Safety Report 7990166-9 (Version None)
Quarter: 2011Q4

REPORT INFORMATION
  Report Type: 
  Country: None (occurrence: None)
  Receive Date: 20111215
  Receipt Date: 20111128
  Transmission Date: 20120403
  Serious: Yes (Other)
  Sender: FDA-Public Use
  Company Number: JPI-P-017971

PATIENT
  Age: 55 Year
  Sex: Female
  Weight: 83.9154 kg

DRUGS (24)
  1. BUSPIRONE [Concomitant]
  2. XYREM [Suspect]
     Indication: NARCOLEPSY
     Dosage: 6 GM (3 GM,2 IN 1 D),ORAL ; (3 GM FIRST DOSE/1.5 GM SECOND DOSE),ORAL
     Route: 048
     Dates: start: 20110101
  3. XYREM [Suspect]
     Indication: INITIAL INSOMNIA
     Dosage: 6 GM (3 GM,2 IN 1 D),ORAL ; (3 GM FIRST DOSE/1.5 GM SECOND DOSE),ORAL
     Route: 048
     Dates: start: 20110101
  4. XYREM [Suspect]
     Indication: MIDDLE INSOMNIA
     Dosage: 6 GM (3 GM,2 IN 1 D),ORAL ; (3 GM FIRST DOSE/1.5 GM SECOND DOSE),ORAL
     Route: 048
     Dates: start: 20110101
  5. XYREM [Suspect]
     Indication: NARCOLEPSY
     Dosage: 6 GM (3 GM,2 IN 1 D),ORAL ; (3 GM FIRST DOSE/1.5 GM SECOND DOSE),ORAL
     Route: 048
     Dates: start: 20110413, end: 20110101
  6. XYREM [Suspect]
     Indication: INITIAL INSOMNIA
     Dosage: 6 GM (3 GM,2 IN 1 D),ORAL ; (3 GM FIRST DOSE/1.5 GM SECOND DOSE),ORAL
     Route: 048
     Dates: start: 20110413, end: 20110101
  7. XYREM [Suspect]
     Indication: MIDDLE INSOMNIA
     Dosage: 6 GM (3 GM,2 IN 1 D),ORAL ; (3 GM FIRST DOSE/1.5 GM SECOND DOSE),ORAL
     Route: 048
     Dates: start: 20110413, end: 20110101
  8. PANTOPRAZOLE [Concomitant]
  9. METAXALONE [Concomitant]
  10. BUTALBITAL ACETAMINOPHEN AND CAFFEINE [Concomitant]
  11. TOLTERODINE TARTRATE [Concomitant]
  12. MELATONIN [Concomitant]
  13. NEFAZODONE HCL [Concomitant]
  14. NAPROXEN [Concomitant]
  15. ZIPRASIDONE HYDROCHLORIDE [Concomitant]
  16. PHENAZOPYRIDINE HCL TAB [Concomitant]
  17. TEMAZEPAM [Concomitant]
  18. LAMOTRIGINE [Concomitant]
  19. PENTOSAN POLYSULFATE SODIUM [Concomitant]
  20. SIMVASTATIN [Concomitant]
  21. VITAMIN B-12 [Concomitant]
  22. CLOPIDOGREL BISULFATE [Concomitant]
  23. MAGNESIUM [Concomitant]
  24. CHLORDIAZEPOXIDE [Concomitant]

REACTIONS (10)
  - BACK PAIN [None]
  - SPINAL COLUMN STENOSIS [None]
  - SPINAL OSTEOARTHRITIS [None]
  - ASTHENIA [None]
  - NECK PAIN [None]
  - CONDITION AGGRAVATED [None]
  - PAIN IN EXTREMITY [None]
  - GAIT DISTURBANCE [None]
  - INTERVERTEBRAL DISC PROTRUSION [None]
  - SCOLIOSIS [None]
